FAERS Safety Report 6023766-6 (Version None)
Quarter: 2008Q4

REPORT INFORMATION
  Report Type: 
  Country: None (occurrence: None)
  Receive Date: 20081230
  Receipt Date: 20081219
  Transmission Date: 20090506
  Serious: Yes (Hospitalization, Other)
  Sender: FDA-Public Use
  Company Number: US-AMGEN-QUU325025

PATIENT
  Sex: Male

DRUGS (2)
  1. ENBREL [Suspect]
     Indication: RHEUMATOID ARTHRITIS
     Route: 058
     Dates: start: 20010810
  2. METHOTREXATE [Concomitant]
     Route: 048

REACTIONS (4)
  - ABASIA [None]
  - ARTERIAL THROMBOSIS LIMB [None]
  - HYPOAESTHESIA [None]
  - INJECTION SITE HAEMATOMA [None]
